FAERS Safety Report 19406389 (Version 1)
Quarter: 2021Q2

REPORT INFORMATION
  Report Type: Spontaneous
  Country: FR (occurrence: FR)
  Receive Date: 20210611
  Receipt Date: 20210611
  Transmission Date: 20210717
  Serious: Yes (Life-Threatening, Other)
  Sender: FDA-Public Use
  Company Number: FR-GLAXOSMITHKLINE-FR2021125390

PATIENT
  Age: 76 Year
  Sex: Male
  Weight: 95.3 kg

DRUGS (3)
  1. AUGMENTIN [Suspect]
     Active Substance: AMOXICILLIN\CLAVULANATE POTASSIUM
     Indication: OBSTRUCTIVE AIRWAYS DISORDER
     Dosage: 1 G, TID (1 G X 3 PER DAY)
     Route: 048
     Dates: start: 20210505, end: 20210505
  2. HEXASPRAY [Suspect]
     Active Substance: BICLOTYMOL
     Indication: OBSTRUCTIVE AIRWAYS DISORDER
     Dosage: UNK
     Route: 055
     Dates: start: 20210505, end: 20210505
  3. VENTOLINE [Suspect]
     Active Substance: ALBUTEROL
     Indication: OBSTRUCTIVE AIRWAYS DISORDER
     Dosage: UNK
     Route: 055
     Dates: start: 20210505, end: 20210505

REACTIONS (1)
  - Anaphylactic shock [Recovered/Resolved]

NARRATIVE: CASE EVENT DATE: 20210505
